FAERS Safety Report 5904641-1 (Version None)
Quarter: 2008Q4

REPORT INFORMATION
  Report Type: 
  Country: None (occurrence: None)
  Receive Date: 20081001
  Receipt Date: 20080926
  Transmission Date: 20090506
  Serious: Yes (Hospitalization)
  Sender: FDA-Public Use
  Company Number: CH-BRISTOL-MYERS SQUIBB COMPANY-14298400

PATIENT
  Age: 58 Year
  Sex: Male

DRUGS (5)
  1. CETUXIMAB [Suspect]
     Indication: OESOPHAGEAL CARCINOMA
     Dosage: CETUXIMAB 5MG/ML. INITIAL INFUSION ON 06MAY08. MOST RECENT INFUSION ON 14JUL08
     Route: 042
     Dates: start: 20080714, end: 20080714
  2. CISPLATIN [Suspect]
     Indication: OESOPHAGEAL CARCINOMA
     Dosage: INITIAL INFUSION ON 06MAY08. MOST RECENT INFUSION ON 14JUL08
     Route: 042
     Dates: start: 20080714, end: 20080714
  3. TAXOTERE [Suspect]
     Indication: OESOPHAGEAL CARCINOMA
     Dosage: INITIAL INFUSION ON 06MAY08. MOST RECENT INFUSION ON 14JUL08
     Route: 042
     Dates: start: 20080714, end: 20080714
  4. RADIOTHERAPY [Suspect]
     Indication: OESOPHAGEAL CARCINOMA
     Dosage: 1.8 DOSAGEFORM = 1.8 GY. INITIAL INFUSION ON 16JUN08.  MOST RECENT INFUSION ON 18JUL08
     Dates: start: 20080718, end: 20080718
  5. MORPHINE [Concomitant]
     Dosage: FORM = ORAL DROP; 112.5 MG (18.75 MG, 6X15 DROPS DAILY)
     Route: 048
     Dates: start: 20080707

REACTIONS (2)
  - DYSPHAGIA [None]
  - NAUSEA [None]
